FAERS Safety Report 4391299-9 (Version None)
Quarter: 2004Q2

REPORT INFORMATION
  Report Type: 
  Country: None (occurrence: None)
  Receive Date: 20040621
  Receipt Date: 20031125
  Transmission Date: 20050107
  Serious: Yes (Other)
  Sender: FDA-Public Use
  Company Number: USA-2003-0011085

PATIENT
  Sex: Female

DRUGS (4)
  1. OXYCONTIN [Suspect]
     Indication: PAIN
     Dosage: 20 MG,
  2. LORAZEPAM [Concomitant]
  3. NORCO [Concomitant]
  4. NEURONTIN [Concomitant]

REACTIONS (1)
  - CONVULSION [None]
